FAERS Safety Report 5587758-3 (Version None)
Quarter: 2008Q1

REPORT INFORMATION
  Report Type: 
  Country: None (occurrence: None)
  Receive Date: 20080108
  Receipt Date: 20071224
  Transmission Date: 20080703
  Serious: Yes (Hospitalization)
  Sender: FDA-Public Use
  Company Number: 2007002549

PATIENT
  Age: 63 Year
  Sex: Male

DRUGS (5)
  1. ERLOTINIB (ERLOTINIB) (ERLOTINIB) [Suspect]
     Indication: TONSIL CANCER
     Dosage: (150 MG)
     Dates: start: 20070621, end: 20070830
  2. BEVACIZUMAB (INJECTION) [Suspect]
     Dosage: (15 MG/M2), INTRAVENOUS
     Route: 042
     Dates: start: 20070621, end: 20070911
  3. TAXOL [Suspect]
     Dosage: (200 MG/M2), INTRAVENOUS
     Route: 042
     Dates: start: 20070621, end: 20071004
  4. CARBOPLATIN [Suspect]
     Dosage: (5), INTRAVENOUS
     Route: 042
     Dates: start: 20070621, end: 20070717
  5. FLUOROURACIL [Suspect]
     Dosage: (200 MG/M2), INTRA CORPUS CAVERNOSUM
     Route: 011
     Dates: start: 20070621, end: 20070807

REACTIONS (5)
  - ASPIRATION [None]
  - DYSPHAGIA [None]
  - HYPOREFLEXIA [None]
  - PNEUMONIA [None]
  - RADIATION DYSPHAGIA [None]
